FAERS Safety Report 25876165 (Version 2)
Quarter: 2025Q4

REPORT INFORMATION
  Report Type: Spontaneous
  Country: US (occurrence: US)
  Receive Date: 20251003
  Receipt Date: 20251022
  Transmission Date: 20260118
  Serious: No
  Sender: ASTELLAS
  Company Number: US-ASTELLAS-2025-AER-054191

PATIENT
  Age: 67 Year
  Sex: Female

DRUGS (6)
  1. VEOZAH [Suspect]
     Active Substance: FEZOLINETANT
     Indication: Hot flush
     Dosage: 45 MG ONCE DAILY
     Route: 048
     Dates: start: 20250928, end: 20250929
  2. VEOZAH [Suspect]
     Active Substance: FEZOLINETANT
     Dosage: 45 MG ONCE DAILY
     Route: 048
     Dates: start: 20251011
  3. CALCIUM [Concomitant]
     Active Substance: CALCIUM
     Indication: Product used for unknown indication
     Dosage: UNKNOWN DOSE AND FREQUENCY (ONGOING)
     Route: 065
  4. MELATONIN [Concomitant]
     Active Substance: MELATONIN
     Indication: Sleep disorder
     Dosage: UNKNOWN DOSE AND FREQUENCY (ONGOING)
     Route: 065
  5. ANASTROZOLE [Concomitant]
     Active Substance: ANASTROZOLE
     Indication: Breast cancer
     Dosage: UNKNOWN DOSE AND FREQUENCY (ONGOING)
     Route: 065
  6. CRESTOR [Concomitant]
     Active Substance: ROSUVASTATIN CALCIUM
     Indication: Breast cancer
     Dosage: UNKNOWN DOSE AND FREQUENCY (ONGOING)
     Route: 065

REACTIONS (2)
  - Urticaria [Recovered/Resolved]
  - Off label use [Unknown]

NARRATIVE: CASE EVENT DATE: 20250928
